FAERS Safety Report 20007301 (Version 1)
Quarter: 2021Q4

REPORT INFORMATION
  Report Type: Report from Study
  Country: FR (occurrence: FR)
  Receive Date: 20211029
  Receipt Date: 20211029
  Transmission Date: 20220304
  Serious: Yes (Hospitalization)
  Sender: FDA-Public Use
  Company Number: FR-ROCHE-2940718

PATIENT
  Age: 65 Year
  Sex: Female

DRUGS (2)
  1. ATEZOLIZUMAB [Suspect]
     Active Substance: ATEZOLIZUMAB
     Indication: Cervix carcinoma
     Dosage: ON 06/OCT/2021, SHE RECEIVED LAST DOSE OF ATEZOLIZUMAB PRIOR TO ONSET OF SERIOUS ADVERSE EVENT.
     Route: 042
     Dates: start: 20211006
  2. CISPLATIN [Suspect]
     Active Substance: CISPLATIN
     Indication: Cervix carcinoma
     Dosage: ON 06/OCT/2021, SHE RECEIVED LAST DOSE OF CISPLATIN PRIOR TO ONSET OF SERIOUS ADVERSE EVENT.
     Route: 042
     Dates: start: 20211006

REACTIONS (1)
  - Acute kidney injury [Not Recovered/Not Resolved]

NARRATIVE: CASE EVENT DATE: 20211011
